FAERS Safety Report 8235674-0 (Version None)
Quarter: 2012Q1

REPORT INFORMATION
  Report Type: 
  Country: None (occurrence: None)
  Receive Date: 20120326
  Receipt Date: 20120316
  Transmission Date: 20120608
  Serious: Yes (Hospitalization)
  Sender: FDA-Public Use
  Company Number: AU-AMGEN-AUSCT2012006809

PATIENT
  Age: 59 Year
  Sex: Male

DRUGS (16)
  1. PANITUMUMAB [Suspect]
     Indication: GASTROOESOPHAGEAL CANCER
     Dosage: UNK
     Dates: start: 20110110, end: 20110629
  2. DOCETAXEL [Concomitant]
     Dosage: UNK
     Dates: start: 20110110, end: 20110629
  3. FLUOROURACIL [Concomitant]
     Dosage: UNK
     Dates: start: 20110110, end: 20110629
  4. ACETAMINOPHEN [Concomitant]
     Indication: PAIN
     Dosage: 1 G, QID
     Route: 048
     Dates: start: 20110123
  5. MORPHINE [Concomitant]
     Indication: PAIN
     Dosage: UNK UNK, PRN
     Route: 048
     Dates: start: 20110123
  6. TEMAZEPAM [Concomitant]
     Dosage: 10 MG, QD
     Route: 048
     Dates: start: 20110104
  7. PANTOPRAZOLE [Concomitant]
     Indication: PROPHYLAXIS
     Dosage: 40 MG, QD
     Route: 048
     Dates: start: 20101101
  8. LORATADINE [Concomitant]
     Dosage: 10 MG, QD
     Route: 048
     Dates: start: 20110209
  9. FLUCONAZOLE [Concomitant]
     Dosage: 100 MG, QD
     Route: 048
     Dates: start: 20110209
  10. MIRTAZAPINE [Concomitant]
     Dosage: 10 MG, QD
     Route: 048
     Dates: start: 20110413
  11. MAXOLON [Concomitant]
     Indication: NAUSEA
     Dosage: 10 MG, QID
     Route: 048
     Dates: start: 20110104
  12. PYRIDOXINE HCL [Concomitant]
     Dosage: 25 MG, TID
     Route: 048
     Dates: start: 20110330
  13. MS CONTIN [Concomitant]
     Dosage: 60 MG, BID
     Route: 048
     Dates: start: 20110309, end: 20110729
  14. ZOVIRAX [Concomitant]
     Dosage: 5 %, QID
     Route: 061
     Dates: start: 20110129
  15. CISPLATIN [Concomitant]
     Dosage: UNK
     Dates: start: 20110110, end: 20110629
  16. OXYCODONE HCL [Concomitant]
     Dosage: 5 MG, PRN
     Route: 048
     Dates: start: 20110104

REACTIONS (3)
  - PYREXIA [None]
  - VASCULAR ACCESS COMPLICATION [None]
  - INFUSION SITE THROMBOSIS [None]
